FAERS Safety Report 4622936-9 (Version None)
Quarter: 2005Q1

REPORT INFORMATION
  Report Type: 
  Country: None (occurrence: None)
  Receive Date: 20050329
  Receipt Date: 20031125
  Transmission Date: 20050727
  Serious: No
  Sender: FDA-Public Use
  Company Number: 10054

PATIENT
  Age: 83 Year
  Sex: Female

DRUGS (3)
  1. METHOTREXATE [Suspect]
     Dosage: 0.571 MG
     Dates: start: 20030805, end: 20031008
  2. LANSOPRAZOLE [Concomitant]
  3. ORGAN LYSATE, STANDARDIZED [Concomitant]

REACTIONS (1)
  - DISSEMINATED TUBERCULOSIS [None]
